FAERS Safety Report 6851972-7 (Version None)
Quarter: 2010Q3

REPORT INFORMATION
  Report Type: 
  Country: None (occurrence: None)
  Receive Date: 20100717
  Receipt Date: 20071101
  Transmission Date: 20110219
  Serious: No
  Sender: FDA-Public Use
  Company Number: US-PFIZER INC-2007094207

PATIENT
  Sex: Male
  Weight: 84.1 kg

DRUGS (2)
  1. CHANTIX [Suspect]
     Indication: SMOKING CESSATION THERAPY
     Dates: start: 20070101, end: 20070601
  2. GENERAL NUTRIENTS [Interacting]
     Dates: end: 20070101

REACTIONS (3)
  - ANGER [None]
  - DRUG INTERACTION [None]
  - THINKING ABNORMAL [None]
